FAERS Safety Report 7732199-3 (Version None)
Quarter: 2011Q3

REPORT INFORMATION
  Report Type: 
  Country: None (occurrence: None)
  Receive Date: 20110906
  Receipt Date: 20110827
  Transmission Date: 20111222
  Serious: Yes (Other)
  Sender: FDA-Public Use
  Company Number: US-ABBOTT-11P-163-0851227-00

PATIENT
  Age: 27 Year
  Sex: Male

DRUGS (9)
  1. IMODIUM [Concomitant]
     Indication: DIARRHOEA
  2. POTASSIUM [Concomitant]
     Indication: MINERAL SUPPLEMENTATION
  3. CLONAZEPAM [Concomitant]
     Indication: SCHIZOPHRENIA, PARANOID TYPE
  4. FUROSEMIDE [Concomitant]
     Indication: JOINT SWELLING
     Dosage: DOES NOT HARDLY USE ANYMORE
  5. METRONIDAZOLE [Concomitant]
     Indication: CROHN'S DISEASE
  6. TANDEM FLEX CAPSULE IRON [Concomitant]
     Indication: MINERAL SUPPLEMENTATION
     Dosage: DAILY
  7. HUMIRA [Suspect]
     Indication: CROHN'S DISEASE
     Dates: start: 20110531
  8. ABILIFY [Concomitant]
     Indication: SCHIZOPHRENIA
  9. ZYPREXA [Concomitant]
     Indication: SCHIZOPHRENIA

REACTIONS (2)
  - FISTULA [None]
  - PAIN [None]
